FAERS Safety Report 21914749 (Version 1)
Quarter: 2023Q1

REPORT INFORMATION
  Report Type: Spontaneous
  Country: NL (occurrence: NL)
  Receive Date: 20230126
  Receipt Date: 20230126
  Transmission Date: 20230417
  Serious: Yes (Hospitalization)
  Sender: FDA-Public Use
  Company Number: NL-LRB-00862059

PATIENT
  Sex: Female
  Weight: 61.8 kg

DRUGS (2)
  1. FUROSEMIDE [Suspect]
     Active Substance: FUROSEMIDE
     Indication: Product used for unknown indication
     Dosage: 40 MILLIGRAM, ONCE A DAY(1DD)
     Route: 065
     Dates: start: 20221226
  2. RITUXIMAB [Suspect]
     Active Substance: RITUXIMAB
     Indication: Ovarian cancer
     Dosage: 10 MILLIGRAM PER MILLILITRE
     Route: 065
     Dates: start: 20221121, end: 20221219

REACTIONS (1)
  - Hyponatraemia [Not Recovered/Not Resolved]
